FAERS Safety Report 6163170-3 (Version None)
Quarter: 2009Q2

REPORT INFORMATION
  Report Type: 
  Country: None (occurrence: None)
  Receive Date: 20090420
  Receipt Date: 20090402
  Transmission Date: 20091009
  Serious: Yes (Death)
  Sender: FDA-Public Use
  Company Number: 2009S1005918

PATIENT
  Age: 52 Year
  Sex: Male
  Weight: 137.4399 kg

DRUGS (20)
  1. OPANA (30 MG) [Suspect]
     Indication: MYALGIA
     Dosage: 30 MG; TWICE A DAY; ORAL
     Route: 048
     Dates: start: 20090202, end: 20090201
  2. OPANA (30 MG) [Suspect]
     Indication: RHEUMATOID ARTHRITIS
     Dosage: 30 MG; TWICE A DAY; ORAL
     Route: 048
     Dates: start: 20090202, end: 20090201
  3. FLUOXETINE HCL [Suspect]
     Indication: DEPRESSION
     Dosage: 40 MG; DAILY; ORAL
     Route: 048
     Dates: start: 20071009, end: 20090201
  4. LUNESTA [Suspect]
     Indication: SOMNOLENCE
     Dosage: 3 MG; AT BEDTIME; ORAL
     Route: 048
  5. LISINOPRIL AND HYDROCHLOROTHIAZIDE [Suspect]
     Indication: HYPERTENSION
     Dosage: 20 MG; DAILY; ORAL, 12.5 MG; DAILY; ORAL
     Route: 048
     Dates: start: 20080404, end: 20090201
  6. LISINOPRIL AND HYDROCHLOROTHIAZIDE [Suspect]
     Indication: HYPERTENSION
     Dosage: 20 MG; DAILY; ORAL, 12.5 MG; DAILY; ORAL
     Route: 048
     Dates: start: 20080404, end: 20090201
  7. METHOTREXATE [Suspect]
     Dosage: 2.5 MG; WEEKLY; ORAL
     Route: 048
  8. ATENOLOL [Suspect]
     Indication: HYPERTENSION
     Dosage: 25 MG; DAILY; ORAL
     Route: 048
  9. CARISOPRODOL [Suspect]
     Dosage: 350 MG; 3 TIMES A DAY; ORAL
     Route: 048
  10. FORADIL [Suspect]
     Dosage: TWICE A DAY; INHALATION
     Route: 055
  11. HYDROXYZINE [Suspect]
     Dosage: 50 MG; 4 TIMES A DAY; ORAL
     Route: 048
  12. NABUMETONE [Suspect]
     Indication: ARTHRITIS
     Dosage: 750 MG; TWICE A DAY; ORAL
     Route: 048
     Dates: start: 20070616, end: 20090201
  13. SEROQUEL [Suspect]
     Dosage: 200 MG; AT BEDTIME; ORAL
     Route: 048
  14. ROPINIROLE HYDROCHLORIDE [Suspect]
     Dosage: 0.5 MG; AT BEDTIME; ORAL
     Route: 048
  15. AMITRIPTYLINE HCL [Suspect]
     Dosage: 25 MG; QHS; ORAL
     Route: 048
  16. PEGINTERFERON ALFA-2A [Suspect]
     Dosage: 180 UG; WEEKLY
  17. LORATADINE [Suspect]
     Indication: RHINITIS ALLERGIC
     Dosage: 10 MG; ORAL
     Route: 048
     Dates: start: 20081031, end: 20090201
  18. ANDRODERM [Suspect]
     Indication: HYPOGONADISM
     Dosage: 5 MG; DAILY; TRANSDERMAL
     Route: 062
     Dates: start: 20080609, end: 20090201
  19. FOLIC ACID [Suspect]
     Dosage: 1 MG; DAILY; ORAL
     Route: 048
     Dates: start: 20070417, end: 20090201
  20. ACETAMINOPHEN AND HYDROCODONE BITARTRATE [Concomitant]

REACTIONS (2)
  - PAIN [None]
  - UNRESPONSIVE TO STIMULI [None]
